FAERS Safety Report 19755506 (Version 1)
Quarter: 2021Q3

REPORT INFORMATION
  Report Type: Spontaneous
  Country: US (occurrence: US)
  Receive Date: 20210827
  Receipt Date: 20210827
  Transmission Date: 20211014
  Serious: Yes (Death, Hospitalization, Other)
  Sender: FDA-Public Use
  Company Number: US-HIKMA PHARMACEUTICALS USA INC.-US-H14001-21-03750

PATIENT
  Age: 19 Year
  Sex: Female

DRUGS (2)
  1. OXCARBAZEPINE. [Suspect]
     Active Substance: OXCARBAZEPINE
     Indication: PRODUCT USED FOR UNKNOWN INDICATION
     Dosage: UNKNOWN
     Route: 065
  2. BUPROPION. [Suspect]
     Active Substance: BUPROPION
     Indication: PRODUCT USED FOR UNKNOWN INDICATION
     Dosage: UNKNOWN
     Route: 065

REACTIONS (14)
  - Mydriasis [Unknown]
  - Cardiopulmonary failure [Fatal]
  - Intentional overdose [Unknown]
  - Tachycardia [Unknown]
  - Unresponsive to stimuli [Unknown]
  - Hypertension [Unknown]
  - Cardiac arrest [Unknown]
  - Suicide attempt [Unknown]
  - Bundle branch block left [Unknown]
  - Hypothermia [Unknown]
  - Electrocardiogram QT prolonged [Unknown]
  - Seizure [Unknown]
  - Cardiogenic shock [Unknown]
  - Skin swelling [Unknown]
